FAERS Safety Report 14854254 (Version 1)
Quarter: 2018Q2

REPORT INFORMATION
  Report Type: Spontaneous
  Country: NL (occurrence: NL)
  Receive Date: 20180507
  Receipt Date: 20180507
  Transmission Date: 20180711
  Serious: Yes (Death, Hospitalization)
  Sender: FDA-Public Use
  Company Number: NL-SA-2018SA123909

PATIENT
  Age: 63 Year
  Sex: Male

DRUGS (7)
  1. ALLOPURINOL. [Concomitant]
     Active Substance: ALLOPURINOL
  2. ENALAPRIL [Concomitant]
     Active Substance: ENALAPRIL
  3. ACENOCOUMAROL [Concomitant]
     Active Substance: ACENOCOUMAROL
  4. PANTOZOL [Concomitant]
     Active Substance: PANTOPRAZOLE SODIUM
  5. DEXAMETHASONE. [Concomitant]
     Active Substance: DEXAMETHASONE
  6. OXALIPLATIN. [Suspect]
     Active Substance: OXALIPLATIN
     Indication: COLON CANCER
     Dosage: NIET MEER TE ACHTERHALEN
     Route: 051
     Dates: start: 2017, end: 2017
  7. 5 FU [Concomitant]
     Active Substance: FLUOROURACIL

REACTIONS (3)
  - Pneumonia [Fatal]
  - Pulmonary embolism [Fatal]
  - Neuropathy peripheral [Unknown]

NARRATIVE: CASE EVENT DATE: 2017
